FAERS Safety Report 9895391 (Version 1)
Quarter: 2014Q1

REPORT INFORMATION
  Report Type: Spontaneous
  Country: US (occurrence: US)
  Receive Date: 20140213
  Receipt Date: 20140213
  Transmission Date: 20141002
  Serious: No
  Sender: FDA-Public Use
  Company Number: US-BRISTOL-MYERS SQUIBB COMPANY-17278656

PATIENT
  Age: 52 Year
  Sex: Female

DRUGS (2)
  1. ABATACEPT SUBQ INJECTION 125MG/ML [Suspect]
     Dosage: 1DF= 125MG/ML
     Route: 058
     Dates: start: 20130109
  2. BENADRYL [Concomitant]

REACTIONS (3)
  - Headache [Unknown]
  - Diarrhoea [Unknown]
  - Fatigue [Unknown]
